FAERS Safety Report 10026354 (Version 2)
Quarter: 2014Q1

REPORT INFORMATION
  Report Type: Spontaneous
  Country: US (occurrence: US)
  Receive Date: 20140321
  Receipt Date: 20140321
  Transmission Date: 20141002
  Serious: No
  Sender: FDA-Public Use
  Company Number: US-ALLERGAN-1309430US

PATIENT
  Age: 69 Year
  Sex: Male

DRUGS (2)
  1. LUMIGAN [Suspect]
     Indication: GLAUCOMA
     Dosage: 2 GTT, QAM
     Route: 047
     Dates: end: 201307
  2. COSOPT [Concomitant]
     Indication: GLAUCOMA

REACTIONS (4)
  - Scleral hyperaemia [Recovered/Resolved]
  - Inappropriate schedule of drug administration [Unknown]
  - Dry eye [Recovered/Resolved]
  - Vision blurred [Recovered/Resolved]
